FAERS Safety Report 9180187 (Version 2)
Quarter: 2013Q2

REPORT INFORMATION
  Report Type: Spontaneous
  Country: BR (occurrence: BR)
  Receive Date: 20130321
  Receipt Date: 20130524
  Transmission Date: 20140414
  Serious: Yes (Hospitalization, Other)
  Sender: FDA-Public Use
  Company Number: PHHY2013BR026019

PATIENT
  Age: 76 Year
  Sex: Male
  Weight: 52 kg

DRUGS (8)
  1. AMINOPHYLLINE SANDOZ [Suspect]
     Indication: EMPHYSEMA
     Dosage: 2 DF, QD
     Route: 048
     Dates: start: 20100121, end: 20110613
  2. DILTIAZEM [Concomitant]
     Indication: HYPERTENSION
     Dosage: 2 DF, QD
  3. BAMIFIX [Concomitant]
     Indication: EMPHYSEMA
     Dosage: 2 DF, QD
     Route: 048
  4. BEROTEC [Concomitant]
     Indication: EMPHYSEMA
     Dosage: 1 DF, QD
  5. AAS [Concomitant]
     Indication: ANEURYSM
     Dosage: 1 DF, QD
     Route: 048
  6. ALPHAGAN [Concomitant]
     Indication: GLAUCOMA
     Dosage: 2 DF, QD
  7. AZOPT [Concomitant]
     Indication: GLAUCOMA
     Dosage: 2 DF, QD
  8. DAFLON [Concomitant]
     Indication: ANEURYSM
     Dosage: 2 DF, QD
     Route: 048

REACTIONS (3)
  - Aneurysm [Unknown]
  - Glaucoma [Not Recovered/Not Resolved]
  - Tremor [Not Recovered/Not Resolved]
